FAERS Safety Report 15751874 (Version 4)
Quarter: 2019Q1

REPORT INFORMATION
  Report Type: Report from Study
  Country: CN (occurrence: CN)
  Receive Date: 20181221
  Receipt Date: 20190201
  Transmission Date: 20190417
  Serious: Yes (Hospitalization, Other)
  Sender: FDA-Public Use
  Company Number: CN-GLAXOSMITHKLINE-CN2018GSK217951

PATIENT
  Age: 42 Year
  Sex: Male
  Weight: 60 kg

DRUGS (6)
  1. SULFAMETHOXAZOLE [Suspect]
     Active Substance: SULFAMETHOXAZOLE
     Indication: PNEUMOCYSTIS JIROVECII PNEUMONIA
     Dosage: 2 DF, QD
     Route: 048
     Dates: start: 20181022, end: 20181126
  2. 3TC [Suspect]
     Active Substance: LAMIVUDINE
     Indication: ANTIVIRAL TREATMENT
     Dosage: 1 DF, QD
     Route: 048
     Dates: start: 20181022
  3. DOLUTEGRAVIR [Suspect]
     Active Substance: DOLUTEGRAVIR
     Indication: HIV INFECTION
     Dosage: 1 DF, QD
     Route: 048
     Dates: start: 20181022
  4. SULFAMETHOXAZOLE [Suspect]
     Active Substance: SULFAMETHOXAZOLE
     Dosage: 2 DF, TID
     Route: 048
     Dates: start: 20181126, end: 20181128
  5. TENOFOVIR [Suspect]
     Active Substance: TENOFOVIR
     Indication: ANTIVIRAL TREATMENT
     Dosage: 1 DF, QD
     Route: 048
     Dates: start: 20181022
  6. SULFAMETHOXAZOLE [Suspect]
     Active Substance: SULFAMETHOXAZOLE
     Dosage: 2 DF, QD
     Route: 048
     Dates: start: 20181128, end: 20181201

REACTIONS (2)
  - Liver injury [Recovering/Resolving]
  - Drug eruption [Recovered/Resolved]

NARRATIVE: CASE EVENT DATE: 20181126
